FAERS Safety Report 4315136-3 (Version None)
Quarter: 2004Q1

REPORT INFORMATION
  Report Type: 
  Country: None (occurrence: None)
  Receive Date: 20040310
  Receipt Date: 20040305
  Transmission Date: 20041129
  Serious: Yes (Life-Threatening, Hospitalization)
  Sender: FDA-Public Use
  Company Number: JP-GLAXOSMITHKLINE-A0501724A

PATIENT
  Age: 42 Year
  Sex: Male

DRUGS (2)
  1. NAVELBINE [Suspect]
     Route: 042
     Dates: start: 20031114
  2. CISPLATIN [Suspect]
     Route: 042
     Dates: start: 20031114

REACTIONS (4)
  - BACK PAIN [None]
  - BLOOD PRESSURE INCREASED [None]
  - CARDIAC ARREST [None]
  - VOMITING [None]
